FAERS Safety Report 14263979 (Version 1)
Quarter: 2017Q4

REPORT INFORMATION
  Report Type: Spontaneous
  Country: US (occurrence: US)
  Receive Date: 20171208
  Receipt Date: 20171208
  Transmission Date: 20180321
  Serious: Yes (Other)
  Sender: FDA-Public Use
  Company Number: US-NAPPMUNDI-USA-2017-0141853

PATIENT
  Sex: Female

DRUGS (1)
  1. BETADINE [Suspect]
     Active Substance: POVIDONE-IODINE
     Indication: WOUND
     Dosage: 10 %, UNK
     Route: 061

REACTIONS (4)
  - Skin discolouration [Unknown]
  - Skin mass [Unknown]
  - Pain [Unknown]
  - Unevaluable event [Unknown]
